FAERS Safety Report 23134347 (Version 1)
Quarter: 2023Q4

REPORT INFORMATION
  Report Type: Spontaneous
  Country: US (occurrence: US)
  Receive Date: 20231101
  Receipt Date: 20231101
  Transmission Date: 20240109
  Serious: Yes (Other)
  Sender: FDA-Public Use
  Company Number: US-PARATEK PHARMACEUTICALS, INC.-2023PTK00553

PATIENT
  Age: 81 Year
  Sex: Female

DRUGS (2)
  1. NUZYRA [Suspect]
     Active Substance: OMADACYCLINE
     Indication: Wound infection
     Dosage: UNK LOADING DOSE, 2X/DAY
     Route: 048
     Dates: start: 202310, end: 202310
  2. NUZYRA [Suspect]
     Active Substance: OMADACYCLINE
     Indication: Abscess limb
     Dosage: UNK MAINTENANCE DOSE, 2X/DAY
     Route: 048
     Dates: start: 202310, end: 202310

REACTIONS (4)
  - Anaphylactic reaction [Unknown]
  - Swollen tongue [Unknown]
  - Speech disorder [Unknown]
  - Inappropriate schedule of product administration [Recovered/Resolved]

NARRATIVE: CASE EVENT DATE: 20231001
